FAERS Safety Report 16466243 (Version 4)
Quarter: 2022Q1

REPORT INFORMATION
  Report Type: Spontaneous
  Country: JP (occurrence: JP)
  Receive Date: 20190621
  Receipt Date: 20220327
  Transmission Date: 20220423
  Serious: Yes (Hospitalization, Other)
  Sender: FDA-Public Use
  Company Number: JP-BRISTOL-MYERS SQUIBB COMPANY-BMS-2018-118623

PATIENT
  Sex: Female
  Weight: 42.7 kg

DRUGS (2)
  1. OPDIVO [Suspect]
     Active Substance: NIVOLUMAB
     Indication: Metastatic renal cell carcinoma
     Dosage: 240 MG, Q3WK
     Route: 041
     Dates: start: 20181106
  2. YERVOY [Suspect]
     Active Substance: IPILIMUMAB
     Indication: Metastatic renal cell carcinoma
     Dosage: 1 MG/KG, Q3WK
     Route: 041
     Dates: start: 20181106

REACTIONS (16)
  - Hypothyroidism [Recovering/Resolving]
  - Cerebral haemorrhage [Unknown]
  - Cerebral mass effect [Unknown]
  - Brain oedema [Unknown]
  - Haematoma [Unknown]
  - Subarachnoid haemorrhage [Unknown]
  - Malaise [Unknown]
  - Painful respiration [Unknown]
  - Fall [Unknown]
  - Restlessness [Unknown]
  - Hyponatraemia [Recovering/Resolving]
  - Contusion [Recovered/Resolved]
  - Brain contusion [Unknown]
  - Rhabdomyolysis [Recovering/Resolving]
  - Hypopituitarism [Recovering/Resolving]
  - Secondary adrenocortical insufficiency [Recovering/Resolving]

NARRATIVE: CASE EVENT DATE: 20181211
